FAERS Safety Report 13720979 (Version 2)
Quarter: 2017Q3

REPORT INFORMATION
  Report Type: Spontaneous
  Country: AT (occurrence: AT)
  Receive Date: 20170706
  Receipt Date: 20170803
  Transmission Date: 20171127
  Serious: Yes (Death, Hospitalization, Other)
  Sender: FDA-Public Use
  Company Number: AT-JAZZ-2017-AT-008517

PATIENT
  Age: 2 Year
  Sex: Male

DRUGS (2)
  1. RITUXIMAB. [Concomitant]
     Active Substance: RITUXIMAB
     Indication: THROMBOTIC MICROANGIOPATHY
  2. DEFITELIO [Suspect]
     Active Substance: DEFIBROTIDE SODIUM
     Indication: VENOOCCLUSIVE DISEASE
     Dosage: 25 MG/DL, QD
     Route: 042

REACTIONS (2)
  - Haemorrhage [Unknown]
  - Multiple organ dysfunction syndrome [Fatal]
